FAERS Safety Report 7568597-0 (Version None)
Quarter: 2011Q2

REPORT INFORMATION
  Report Type: 
  Country: None (occurrence: None)
  Receive Date: 20110623
  Receipt Date: 20110418
  Transmission Date: 20111010
  Serious: No
  Sender: FDA-Public Use
  Company Number: US-TYCO HEALTHCARE/MALLINCKRODT-T201100796

PATIENT
  Sex: Female

DRUGS (3)
  1. ADENOSINE [Concomitant]
     Indication: CARDIAC STRESS TEST
     Dosage: 28.5 MG, SINGLE
     Dates: start: 20110408, end: 20110408
  2. TECHNETIUM TC 99M SESTAMIBI [Suspect]
     Indication: CARDIAC STRESS TEST
     Dosage: UNK
     Route: 042
     Dates: start: 20110408, end: 20110408
  3. TECHNETIUM TC 99M GENERATOR [Concomitant]
     Indication: CARDIAC STRESS TEST
     Dosage: 33 MCI, SINGLE
     Route: 042
     Dates: start: 20110408, end: 20110408

REACTIONS (1)
  - DRUG INEFFECTIVE [None]
